FAERS Safety Report 16342241 (Version 1)
Quarter: 2019Q2

REPORT INFORMATION
  Report Type: Spontaneous
  Country: US (occurrence: US)
  Receive Date: 20190416
  Receipt Date: 20190416
  Transmission Date: 20190711
  Serious: No
  Sender: FDA-Public Use
  Company Number: None

PATIENT
  Age: 85 Year
  Sex: Male

DRUGS (1)
  1. REPATHA [Suspect]
     Active Substance: EVOLOCUMAB
     Indication: HYPERLIPIDAEMIA
     Dosage: INJECT 140MG SUBCUTANEOUSLY EVERY MONTH AS DIRECTED
     Route: 058
     Dates: start: 201804

REACTIONS (2)
  - Myalgia [None]
  - Fungal infection [None]
